FAERS Safety Report 15220999 (Version 3)
Quarter: 2018Q3

REPORT INFORMATION
  Report Type: Spontaneous
  Country: US (occurrence: US)
  Receive Date: 20180731
  Receipt Date: 20180822
  Transmission Date: 20181010
  Serious: Yes (Life-Threatening, Hospitalization, Other)
  Sender: FDA-Public Use
  Company Number: US-LUPIN PHARMACEUTICALS INC.-2018-05366

PATIENT
  Age: 59 Year
  Sex: Male
  Weight: 104.31 kg

DRUGS (1)
  1. CLEARLAX [Suspect]
     Active Substance: POLYETHYLENE GLYCOL 3350
     Indication: BOWEL PREPARATION
     Dosage: UNK, MIX WITH 1/2 GALLON  GATORADE
     Route: 048
     Dates: start: 20180415, end: 20180415

REACTIONS (6)
  - Blood pressure decreased [Recovered/Resolved]
  - Mobility decreased [Recovered/Resolved]
  - Anaphylactic shock [Recovered/Resolved]
  - Joint lock [Recovered/Resolved]
  - Apparent death [Recovered/Resolved]
  - Vomiting [Recovered/Resolved]

NARRATIVE: CASE EVENT DATE: 20180415
